FAERS Safety Report 16794588 (Version 1)
Quarter: 2019Q3

REPORT INFORMATION
  Report Type: Report from Study
  Country: None (occurrence: RO)
  Receive Date: 20190911
  Receipt Date: 20190911
  Transmission Date: 20191005
  Serious: Yes (Other)
  Sender: FDA-Public Use
  Company Number: RO-ABBVIE-19K-135-2915078-00

PATIENT
  Age: 79 Year
  Sex: Female

DRUGS (1)
  1. DUODOPA [Suspect]
     Active Substance: CARBIDOPA\LEVODOPA
     Indication: PARKINSON^S DISEASE
     Dosage: DM=7.00?DC=2.60?ED=1.50?NRED=2;?DMN=0.00?DCN=0.00?EDN=0.00?NREDN=0
     Route: 050
     Dates: start: 20160420

REACTIONS (7)
  - Extrapyramidal disorder [Not Recovered/Not Resolved]
  - Dyslipidaemia [Recovering/Resolving]
  - Acute vestibular syndrome [Recovering/Resolving]
  - Blood pressure orthostatic abnormal [Recovering/Resolving]
  - Psychotic disorder [Recovering/Resolving]
  - Lacunar infarction [Not Recovered/Not Resolved]
  - Mixed dementia [Unknown]

NARRATIVE: CASE EVENT DATE: 20190829
